FAERS Safety Report 10668907 (Version 1)
Quarter: 2014Q4

REPORT INFORMATION
  Report Type: Spontaneous
  Country: DE (occurrence: DE)
  Receive Date: 20141222
  Receipt Date: 20141222
  Transmission Date: 20150529
  Serious: Yes (Other)
  Sender: FDA-Public Use
  Company Number: DE-BAYER-2014-187438

PATIENT
  Sex: Female

DRUGS (1)
  1. MIRENA [Suspect]
     Active Substance: LEVONORGESTREL
     Indication: CONTRACEPTION
     Dosage: 20 MCG/24HR, CONT
     Route: 015

REACTIONS (11)
  - Pain [Recovered/Resolved]
  - Suicidal ideation [Recovered/Resolved]
  - Uterine haemorrhage [Recovered/Resolved]
  - Crying [Recovered/Resolved]
  - Depressed mood [Recovered/Resolved]
  - Back pain [Recovered/Resolved]
  - Mood swings [Recovered/Resolved]
  - Alopecia [Recovered/Resolved]
  - Uterine perforation [Recovered/Resolved]
  - Sleep disorder [Recovered/Resolved]
  - Acne [Recovered/Resolved]
